FAERS Safety Report 5320750-2 (Version None)
Quarter: 2007Q2

REPORT INFORMATION
  Report Type: 
  Country: None (occurrence: None)
  Receive Date: 20070509
  Receipt Date: 20070427
  Transmission Date: 20071010
  Serious: Yes (Congenital Anomaly, Other)
  Sender: FDA-Public Use
  Company Number: JP-PFIZER INC-2007035864

PATIENT

DRUGS (3)
  1. ZITHROMAC [Suspect]
     Dosage: DAILY DOSE:1000MG
     Route: 064
  2. LAXOBERON [Concomitant]
     Route: 064
  3. HERBAL PREPARATION [Concomitant]
     Route: 064

REACTIONS (3)
  - DRUG EXPOSURE DURING PREGNANCY [None]
  - PULMONARY ARTERY ATRESIA [None]
  - VENTRICULAR SEPTAL DEFECT [None]
